FAERS Safety Report 8816626 (Version 3)
Quarter: 2013Q2

REPORT INFORMATION
  Report Type: Spontaneous
  Country: DE (occurrence: None)
  Receive Date: 20120928
  Receipt Date: 20130506
  Transmission Date: 20140414
  Serious: Yes (Life-Threatening, Hospitalization)
  Sender: FDA-Public Use
  Company Number: AUR-APL-2012-04076

PATIENT
  Age: 73 Year
  Sex: Female
  Weight: 90 kg

DRUGS (15)
  1. METFORMIN [Suspect]
     Indication: TYPE 2 DIABETES MELLITUS
     Dosage: 1700 MG (850 MG, 2 IN 1 D), ORAL
     Route: 048
     Dates: start: 2010
  2. ASS [Concomitant]
  3. FURORESE (FUROSEMIDE) [Concomitant]
  4. HCT (HYDROCHLOROTHIAZIDE) [Concomitant]
  5. CAPTOPRIL (CAPTOPRIL) (CAPTOPRIL) [Concomitant]
  6. GLIMEPIRIDE (GLIMEPIRIDE) [Concomitant]
  7. NEURO-RATIOPHARM (VITAMINES-B-LABAZ) [Concomitant]
  8. ZOPICLON (ZOPICLONE) [Concomitant]
  9. FENISTIL (DIMETINDENE MALEATE) [Concomitant]
  10. CEFUROXIME (CEFUROXIME) [Concomitant]
  11. RAMIPRIL (RAMIPRIL) [Concomitant]
  12. ACTRAPHANE [Concomitant]
  13. BISOPROLOL (BISOPROLOL) [Concomitant]
  14. NOVALGIN TROPFEN (NOVO-PETRIN) [Concomitant]
  15. NTRENDIPRIN (NITRENDIPINE) [Concomitant]

REACTIONS (12)
  - Lactic acidosis [None]
  - Haemoglobin decreased [None]
  - Red blood cell count decreased [None]
  - Blood potassium increased [None]
  - Renal failure acute [None]
  - Cardiac failure [None]
  - Bradyarrhythmia [None]
  - Haematocrit decreased [None]
  - Platelet count decreased [None]
  - Atrial fibrillation [None]
  - Red cell distribution width increased [None]
  - Prothrombin time prolonged [None]
